FAERS Safety Report 19410172 (Version 2)
Quarter: 2021Q2

REPORT INFORMATION
  Report Type: Spontaneous
  Country: US (occurrence: US)
  Receive Date: 20210614
  Receipt Date: 20210629
  Transmission Date: 20210717
  Serious: Yes (Other)
  Sender: FDA-Public Use
  Company Number: US-UCBSA-2021027689

PATIENT
  Age: 2 Year
  Sex: Male
  Weight: 9.7 kg

DRUGS (3)
  1. VIMPAT [Suspect]
     Active Substance: LACOSAMIDE
     Indication: SEIZURE
     Dosage: 50 MILLIGRAM, ONCE DAILY (QD)
     Route: 042
     Dates: start: 20210602, end: 20210602
  2. KEPPRA [Suspect]
     Active Substance: LEVETIRACETAM
     Indication: SEIZURE
     Dosage: 300 MILLIGRAM, ONCE DAILY (QD)
     Route: 042
     Dates: start: 20210602, end: 20210602
  3. DIASTAT [DIAZEPAM] [Concomitant]
     Indication: SEIZURE
     Dosage: 7.5 MG
     Route: 054
     Dates: start: 20210602

REACTIONS (3)
  - Injection site swelling [Unknown]
  - Product use issue [Unknown]
  - Extravasation [Recovered/Resolved]

NARRATIVE: CASE EVENT DATE: 20210602
